FAERS Safety Report 20323833 (Version 6)
Quarter: 2022Q2

REPORT INFORMATION
  Report Type: Report from Study
  Country: GB (occurrence: None)
  Receive Date: 20220111
  Receipt Date: 20220625
  Transmission Date: 20220720
  Serious: Yes (Hospitalization)
  Sender: FDA-Public Use
  Company Number: GB-ROCHE-2997440

PATIENT
  Age: 70 Year
  Sex: Female
  Weight: 70.8 kg

DRUGS (7)
  1. ATEZOLIZUMAB [Suspect]
     Active Substance: ATEZOLIZUMAB
     Indication: Bile duct cancer
     Dosage: 1200 MG ON DAY 1 OF EACH 21-DAY CYCLE. ON 22/DEC/2021, MOST RECENT DOSE OF STUDY DRUG PRIOR TO AE.
     Route: 041
     Dates: start: 20210630
  2. CISPLATIN [Suspect]
     Active Substance: CISPLATIN
     Indication: Bile duct cancer
     Dosage: 25 MG/M^2 ON DAYS 1 AND 8 OF EACH 21-DAY CYCLE FOR CYCLES 1-8.  AS REQUIRED (Q.S).?START DATE OF MOS
     Route: 042
     Dates: start: 20210630
  3. GEMCITABINE [Suspect]
     Active Substance: GEMCITABINE
     Indication: Bile duct cancer
     Dosage: 1000 MG/M^2 ON DAYS 1 AND 8 OF EACH 21-DAY CYCLE FOR CYCLES 1-8. AS REQUIRED (Q.S)?START DATE OF MOS
     Route: 042
     Dates: start: 20210630
  4. BEVACIZUMAB [Suspect]
     Active Substance: BEVACIZUMAB
     Indication: Bile duct cancer
     Dosage: 22/DEC/2021 SHE RECEIVED MOST RECENT DOSE OF BEVACIZUMAB WILL BE ADMINISTERED ON DAY 1 OF EACH 21-DA
     Route: 042
     Dates: start: 20210630
  5. ACETAMINOPHEN [Concomitant]
     Active Substance: ACETAMINOPHEN
     Indication: Abdominal pain
     Route: 065
     Dates: start: 202104
  6. MORPHINE SULFATE [Concomitant]
     Active Substance: MORPHINE SULFATE
     Indication: Abdominal pain
     Route: 065
     Dates: start: 20210630
  7. DALTEPARIN [Concomitant]
     Active Substance: DALTEPARIN
     Indication: Deep vein thrombosis
     Route: 065
     Dates: start: 20210828

REACTIONS (1)
  - Confusional state [Not Recovered/Not Resolved]

NARRATIVE: CASE EVENT DATE: 20220101
